FAERS Safety Report 21890600 (Version 1)
Quarter: 2023Q1

REPORT INFORMATION
  Report Type: Report from Study
  Country: CA (occurrence: CA)
  Receive Date: 20230120
  Receipt Date: 20230120
  Transmission Date: 20230417
  Serious: Yes (Other)
  Sender: FDA-Public Use
  Company Number: CA-ABBVIE-4276018

PATIENT
  Sex: Male

DRUGS (1)
  1. RINVOQ [Suspect]
     Active Substance: UPADACITINIB
     Indication: Rheumatoid arthritis
     Route: 048
     Dates: start: 20200828

REACTIONS (6)
  - Pulmonary fibrosis [Unknown]
  - Therapeutic product effect incomplete [Unknown]
  - Ligament sprain [Unknown]
  - Joint swelling [Unknown]
  - Hypoaesthesia [Unknown]
  - Grip strength decreased [Unknown]
